FAERS Safety Report 6706845-7 (Version None)
Quarter: 2010Q2

REPORT INFORMATION
  Report Type: 
  Country: None (occurrence: None)
  Receive Date: 20100503
  Receipt Date: 20090213
  Transmission Date: 20101027
  Serious: Yes (Other)
  Sender: FDA-Public Use
  Company Number: US-BAYER-200810018BCC

PATIENT
  Age: 58 Year
  Sex: Female
  Weight: 84 kg

DRUGS (13)
  1. ALKA SELTZER PLUS COLD EFFERVESCENT TABLETS [Suspect]
     Indication: NASOPHARYNGITIS
     Dosage: 2 TABLETS DAILY ON 3 UNKNOWN DATES IN DEC-2007
     Route: 048
     Dates: start: 20071201
  2. ALKA SELTZER PLUS COLD EFFERVESCENT TABLETS [Suspect]
     Route: 048
     Dates: start: 20071223, end: 20071224
  3. SPRING VALLEY CALCIUM [Concomitant]
  4. TRAMADOL HCL [Concomitant]
  5. POTASSIUM CHLORIDE [Concomitant]
  6. NEXIUM [Concomitant]
  7. LISINOPRIL [Concomitant]
  8. HYDROCHLOROTHIAZIDE [Concomitant]
  9. BENICAR [Concomitant]
  10. NORVASC [Concomitant]
  11. RISPERDAL [Concomitant]
  12. TRAZODONE HCL [Concomitant]
  13. TITALOP NOS [Concomitant]

REACTIONS (2)
  - EPISTAXIS [None]
  - HAEMOPTYSIS [None]
